FAERS Safety Report 5485256-9 (Version None)
Quarter: 2007Q4

REPORT INFORMATION
  Report Type: 
  Country: None (occurrence: None)
  Receive Date: 20071010
  Receipt Date: 20071010
  Transmission Date: 20080405
  Serious: Yes (Other)
  Sender: FDA-Public Use
  Company Number: None

PATIENT
  Sex: Male
  Weight: 70.2 kg

DRUGS (2)
  1. BACTRIM DS [Suspect]
     Indication: ABSCESS
     Dosage: 800/160MG  BID  PO
     Route: 048
     Dates: start: 20070824, end: 20070828
  2. BACTRIM DS [Suspect]
     Indication: CELLULITIS
     Dosage: 800/160MG  BID  PO
     Route: 048
     Dates: start: 20070824, end: 20070828

REACTIONS (2)
  - BLOOD CREATININE INCREASED [None]
  - BLOOD UREA INCREASED [None]
